FAERS Safety Report 5997401-7 (Version None)
Quarter: 2008Q4

REPORT INFORMATION
  Report Type: 
  Country: None (occurrence: None)
  Receive Date: 20081212
  Receipt Date: 20081111
  Transmission Date: 20090506
  Serious: No
  Sender: FDA-Public Use
  Company Number: US-ABBOTT-08P-163-0487278-00

PATIENT
  Sex: Female
  Weight: 61.29 kg

DRUGS (6)
  1. HUMIRA [Suspect]
     Indication: CROHN'S DISEASE
     Dosage: LOADING DOSE, ONCE
     Route: 050
     Dates: start: 20081105, end: 20081105
  2. HUMIRA [Suspect]
     Dosage: LOADING DOSE, ONCE, DUE 20 NOV 08
  3. HUMIRA [Suspect]
     Dosage: TOOK 2 DOSES INSTEAD OF ALL 4
     Route: 050
     Dates: start: 20080725, end: 20080725
  4. HUMIRA [Suspect]
     Dosage: LOADING DOSE
     Route: 058
     Dates: start: 20081105, end: 20081111
  5. MERCAPTOPURINE [Concomitant]
     Indication: CROHN'S DISEASE
     Dosage: UNKNOWN
  6. LORAZEPAM [Concomitant]
     Indication: ANXIETY
     Dates: start: 20080701

REACTIONS (3)
  - ANXIETY [None]
  - INJECTION SITE PAIN [None]
  - SENSORY DISTURBANCE [None]
